FAERS Safety Report 7191956-5 (Version None)
Quarter: 2010Q4

REPORT INFORMATION
  Report Type: 
  Country: None (occurrence: None)
  Receive Date: 20101223
  Receipt Date: 20101215
  Transmission Date: 20110411
  Serious: Yes (Other)
  Sender: FDA-Public Use
  Company Number: PHHY2010US07954

PATIENT
  Sex: Female

DRUGS (14)
  1. EXTAVIA [Suspect]
     Indication: MULTIPLE SCLEROSIS
     Dosage: UNK
     Dates: start: 20100101
  2. EXTAVIA [Suspect]
     Dosage: 0.25 MG (1 ML), QOD
     Route: 058
     Dates: start: 20100206
  3. EXTAVIA [Suspect]
     Dosage: 0.125 MG, QOD
     Route: 058
     Dates: start: 20100224
  4. EXTAVIA [Suspect]
     Dosage: 0.25 MG (1 ML), QOD
     Route: 058
  5. METHYLDOPA [Concomitant]
     Indication: HYPERTENSION
     Dosage: 250 MG, BID
  6. HYDROCHLORIC ACID [Concomitant]
     Dosage: 25 MG, UNK
  7. CALCIUM WITH VITAMIN D [Concomitant]
     Dosage: UNK
  8. HYDROCHLOROTHIAZIDE [Concomitant]
     Dosage: 12.5 MG, UNK
  9. MULTI-VITAMINS [Concomitant]
     Dosage: UNK
  10. KLOR-CON [Concomitant]
     Dosage: 10 TABLET 10 MEQ ER
  11. HYDROCORTISONE [Concomitant]
  12. LEVODOPA [Concomitant]
  13. POTASSIUM [Concomitant]
     Dosage: 10 MEQ, TID
  14. ACETAMINOPHEN [Concomitant]

REACTIONS (14)
  - CRYING [None]
  - DECREASED INTEREST [None]
  - DEPRESSION [None]
  - FATIGUE [None]
  - FEELING ABNORMAL [None]
  - INJECTION SITE ERYTHEMA [None]
  - INJECTION SITE HAEMATOMA [None]
  - INJECTION SITE PAIN [None]
  - INJECTION SITE PRURITUS [None]
  - INJECTION SITE SWELLING [None]
  - IRRITABILITY [None]
  - PANIC ATTACK [None]
  - SOCIAL AVOIDANT BEHAVIOUR [None]
  - SOMNOLENCE [None]
